FAERS Safety Report 6124305-1 (Version None)
Quarter: 2009Q1

REPORT INFORMATION
  Report Type: 
  Country: None (occurrence: None)
  Receive Date: 20090317
  Receipt Date: 20090305
  Transmission Date: 20090719
  Serious: Yes (Other)
  Sender: FDA-Public Use
  Company Number: 8034976

PATIENT
  Age: 51 Year
  Sex: Female
  Weight: 68.18 kg

DRUGS (6)
  1. KEPPRA [Suspect]
     Indication: CONVULSION
     Dosage: 1000 MG 2/D PO
     Route: 048
     Dates: start: 20080601, end: 20080717
  2. KEPPRA [Suspect]
     Indication: CONVULSION
     Dosage: 2000 MG 2/D PO
     Route: 048
     Dates: start: 20080717
  3. KEPPRA [Suspect]
     Indication: CONVULSION
     Dosage: 1450 MG 2/D PO
     Route: 048
  4. VASOTEC [Concomitant]
  5. PROTONIX [Concomitant]
  6. PRILOSEC [Concomitant]

REACTIONS (7)
  - AMNESIA [None]
  - ANXIETY [None]
  - BLOOD URINE PRESENT [None]
  - CONVULSION [None]
  - GASTRIC ULCER HAEMORRHAGE [None]
  - INFECTION [None]
  - IRRITABILITY [None]
